FAERS Safety Report 13696854 (Version 1)
Quarter: 2017Q2

REPORT INFORMATION
  Report Type: Spontaneous
  Country: US (occurrence: US)
  Receive Date: 20170627
  Receipt Date: 20170627
  Transmission Date: 20170830
  Serious: Yes (Life-Threatening, Hospitalization, Disabling, Other)
  Sender: FDA-Public Use
  Company Number: None

PATIENT
  Age: 58 Year
  Sex: Male
  Weight: 103.5 kg

DRUGS (2)
  1. ASPIRIN. [Concomitant]
     Active Substance: ASPIRIN
  2. KLONIPIN [Suspect]
     Active Substance: CLONAZEPAM
     Indication: SLEEP DISORDER
     Dosage: ?          OTHER STRENGTH:MG;QUANTITY:30 TABLET(S);?
     Route: 048
     Dates: start: 19970111, end: 20120202

REACTIONS (24)
  - Anxiety [None]
  - Cognitive disorder [None]
  - Visual impairment [None]
  - Insomnia [None]
  - Memory impairment [None]
  - Fluid retention [None]
  - Depersonalisation/derealisation disorder [None]
  - Withdrawal syndrome [None]
  - Depression [None]
  - Suicidal ideation [None]
  - Skin burning sensation [None]
  - Tinnitus [None]
  - Akathisia [None]
  - Anger [None]
  - Bedridden [None]
  - Violence-related symptom [None]
  - Headache [None]
  - Abdominal distension [None]
  - Derealisation [None]
  - Drug ineffective [None]
  - Muscular weakness [None]
  - Myalgia [None]
  - Palpitations [None]
  - Pruritus [None]

NARRATIVE: CASE EVENT DATE: 20170501
